FAERS Safety Report 7864340-6 (Version None)
Quarter: 2011Q4

REPORT INFORMATION
  Report Type: 
  Country: None (occurrence: None)
  Receive Date: 20111028
  Receipt Date: 20111027
  Transmission Date: 20120403
  Serious: Yes (Life-Threatening, Other)
  Sender: FDA-Public Use
  Company Number: JP-PFIZER INC-2011254423

PATIENT
  Age: 73 Year
  Sex: Male
  Weight: 50 kg

DRUGS (17)
  1. GLYBURIDE [Concomitant]
     Dosage: 1.25 MG PER DAY
  2. METHYCOBAL [Concomitant]
     Dosage: UNK
  3. MUCOSTA [Concomitant]
     Dosage: UNK
  4. NEUROTROPIN [Concomitant]
     Dosage: UNK
  5. GIBONZ [Concomitant]
     Dosage: 1 MG PER DAY
  6. ANSATUR [Concomitant]
     Dosage: 300 MG PER DAY
  7. ENALAPRIL MALEATE [Concomitant]
     Dosage: 5
  8. MAGNESIUM OXIDE [Concomitant]
     Dosage: UNK
  9. OLOPATADINE HCL [Concomitant]
     Dosage: 5 MG PER DAY
     Route: 048
  10. JUVELA N [Concomitant]
     Dosage: UNK
  11. BERAPROST SODIUM [Concomitant]
  12. CILOSTAZOL [Concomitant]
     Dosage: 40 MG PER DAY
  13. JANUVIA [Concomitant]
     Dosage: 50 MG PER DAY
  14. LYRICA [Suspect]
     Indication: CERVICOBRACHIAL SYNDROME
     Dosage: 75 MG, 2X/DAY
     Route: 048
     Dates: start: 20110818, end: 20111003
  15. LYRICA [Suspect]
     Indication: PAIN
  16. HALCION [Concomitant]
     Dosage: 0.25 MCG PER DAY
     Route: 048
  17. METFORMIN HCL [Concomitant]
     Dosage: 250

REACTIONS (2)
  - ASTHMA [None]
  - THROAT IRRITATION [None]
